FAERS Safety Report 9585718 (Version 1)
Quarter: 2013Q4

REPORT INFORMATION
  Report Type: Spontaneous
  Country: US (occurrence: US)
  Receive Date: 20131003
  Receipt Date: 20131003
  Transmission Date: 20140711
  Serious: No
  Sender: FDA-Public Use
  Company Number: US-B.I. PHARMACEUTICALS,INC./RIDGEFIELD-2013-BI-30157BP

PATIENT
  Age: 65 Year
  Sex: Female
  Weight: 108 kg

DRUGS (7)
  1. PRADAXA [Suspect]
     Indication: ATRIAL FIBRILLATION
     Dosage: 300 MG
     Route: 048
     Dates: start: 201304
  2. AMIODORONE HCL [Concomitant]
     Indication: ATRIAL FIBRILLATION
     Dosage: 200 MG
     Route: 048
     Dates: start: 201304
  3. LIPITOR [Concomitant]
     Indication: BLOOD CHOLESTEROL INCREASED
     Dosage: 80 MG
     Route: 048
     Dates: start: 2010
  4. NOVALOG [Concomitant]
     Indication: DIABETES MELLITUS
     Dosage: 20 U
     Route: 058
     Dates: start: 2012
  5. LANTIS [Concomitant]
     Indication: DIABETES MELLITUS
     Dosage: 12 U
     Route: 058
     Dates: start: 2012
  6. LOPRESSOR [Concomitant]
     Indication: HYPERTENSION
     Dosage: 150 MG
     Route: 048
     Dates: start: 201304
  7. EXFORGE [Concomitant]
     Indication: HYPERTENSION
     Dosage: DOSE PER APPLICATION: 5-160; DAILY DOSE: 5-160
     Route: 048
     Dates: start: 201304

REACTIONS (3)
  - Gingival bleeding [Recovered/Resolved]
  - Abdominal pain [Not Recovered/Not Resolved]
  - Anaemia [Not Recovered/Not Resolved]
